FAERS Safety Report 19719589 (Version 1)
Quarter: 2021Q3

REPORT INFORMATION
  Report Type: Spontaneous
  Country: IN (occurrence: IN)
  Receive Date: 20210818
  Receipt Date: 20210818
  Transmission Date: 20211014
  Serious: Yes (Hospitalization)
  Sender: FDA-Public Use
  Company Number: IN-GE HEALTHCARE LIFE SCIENCES-2021CSU003945

PATIENT

DRUGS (2)
  1. OMNIPAQUE [Suspect]
     Active Substance: IOHEXOL
     Indication: ANGIOGRAM PERIPHERAL
     Dosage: 100 ML, SINGLE
     Route: 013
     Dates: start: 20210724, end: 20210724
  2. OMNIPAQUE [Suspect]
     Active Substance: IOHEXOL
     Indication: VASCULAR PSEUDOANEURYSM

REACTIONS (1)
  - Vascular pseudoaneurysm [Recovered/Resolved]

NARRATIVE: CASE EVENT DATE: 20210724
